FAERS Safety Report 6556784-X (Version None)
Quarter: 2010Q1

REPORT INFORMATION
  Report Type: 
  Country: None (occurrence: None)
  Receive Date: 20100125
  Receipt Date: 20090320
  Transmission Date: 20100710
  Serious: Yes (Death, Hospitalization, Other)
  Sender: FDA-Public Use
  Company Number: US021974

PATIENT
  Age: 45 Year
  Sex: Female

DRUGS (14)
  1. ACTIQ [Suspect]
     Indication: MIGRAINE
     Dosage: SEE IMAGE
     Route: 002
     Dates: start: 20040713, end: 20050323
  2. ACTIQ [Suspect]
     Indication: MIGRAINE
     Dosage: SEE IMAGE
     Route: 002
     Dates: start: 20050323, end: 20050505
  3. ACTIQ [Suspect]
     Indication: MIGRAINE
     Dosage: SEE IMAGE
     Route: 002
     Dates: start: 20050505, end: 20050805
  4. ACTIQ [Suspect]
     Indication: MIGRAINE
     Dosage: SEE IMAGE
     Route: 002
     Dates: start: 20050805, end: 20061220
  5. ACTIQ [Suspect]
     Indication: MIGRAINE
     Dosage: SEE IMAGE
     Route: 002
     Dates: start: 20061220, end: 20070412
  6. ACTIQ [Suspect]
     Indication: MIGRAINE
     Dosage: SEE IMAGE
     Route: 002
     Dates: start: 20070412
  7. AVINZA [Concomitant]
  8. VALIUM [Concomitant]
  9. LIDODERM PATCHES (LIDOCAINE) [Concomitant]
  10. TIZANIDINE HCL [Concomitant]
  11. DIOVAN [Concomitant]
  12. ALBUTEROL INHALER (SALBUTAMOL) [Concomitant]
  13. CLONAZEPAM [Concomitant]
  14. PROMETHAZINE/CODEINE (CODEINE PHOSPHATE, PROMETHAZINE HYDROCHLORIDE) [Concomitant]

REACTIONS (36)
  - ABDOMINAL PAIN UPPER [None]
  - ABNORMAL BEHAVIOUR [None]
  - ACCIDENTAL OVERDOSE [None]
  - ANXIETY [None]
  - APHTHOUS STOMATITIS [None]
  - BLOOD PRESSURE DECREASED [None]
  - BRAIN OEDEMA [None]
  - BRONCHOPNEUMONIA [None]
  - CARDIAC DISORDER [None]
  - CONSTIPATION [None]
  - CONTUSION [None]
  - DIARRHOEA [None]
  - DRUG PRESCRIBING ERROR [None]
  - DYSPNOEA [None]
  - FAECALOMA [None]
  - FAECES DISCOLOURED [None]
  - GASTRITIS [None]
  - HEART RATE INCREASED [None]
  - HEPATIC STEATOSIS [None]
  - MAJOR DEPRESSION [None]
  - MIGRAINE [None]
  - MUSCULOSKELETAL PAIN [None]
  - NAUSEA [None]
  - PAIN [None]
  - PAIN IN EXTREMITY [None]
  - PALPITATIONS [None]
  - PHARYNGITIS [None]
  - PULSE ABNORMAL [None]
  - PULSE PRESSURE DECREASED [None]
  - REBOUND EFFECT [None]
  - RECTAL HAEMORRHAGE [None]
  - TENSION HEADACHE [None]
  - THERAPEUTIC AGENT TOXICITY [None]
  - THINKING ABNORMAL [None]
  - UNRESPONSIVE TO STIMULI [None]
  - VOMITING [None]
